FAERS Safety Report 11981613 (Version 1)
Quarter: 2016Q1

REPORT INFORMATION
  Report Type: Report from Study
  Country: PL (occurrence: PL)
  Receive Date: 20160131
  Receipt Date: 20160131
  Transmission Date: 20160526
  Serious: Yes (Other)
  Sender: FDA-Public Use
  Company Number: PHHY2016PL008831

PATIENT
  Age: 78 Year
  Sex: Male

DRUGS (1)
  1. IMATINIB [Suspect]
     Active Substance: IMATINIB
     Indication: PRODUCT USED FOR UNKNOWN INDICATION
     Dosage: 400 MG, QD
     Route: 065
     Dates: start: 2006, end: 201201

REACTIONS (4)
  - Rash [Unknown]
  - Hyperbilirubinaemia [Unknown]
  - Oedema peripheral [Unknown]
  - Renal cancer [Unknown]
